FAERS Safety Report 5501102-9 (Version None)
Quarter: 2007Q4

REPORT INFORMATION
  Report Type: 
  Country: None (occurrence: None)
  Receive Date: 20071026
  Receipt Date: 20071016
  Transmission Date: 20080405
  Serious: Yes (Hospitalization)
  Sender: FDA-Public Use
  Company Number: E2020-01630-SPO-US

PATIENT
  Age: 76 Year
  Sex: Male
  Weight: 75 kg

DRUGS (12)
  1. ARICEPT [Suspect]
     Indication: DEMENTIA
     Dosage: 5  MG, 1 IN 1 D, ORAL; 10 MG, 1 IN 1 D, ORAL
     Route: 048
     Dates: end: 20070911
  2. ARICEPT [Suspect]
     Indication: DEMENTIA
     Dosage: 5  MG, 1 IN 1 D, ORAL; 10 MG, 1 IN 1 D, ORAL
     Route: 048
     Dates: start: 20070912
  3. SEROQUEL [Suspect]
     Dosage: 12.5 MG, 1 IN 1 D, ORAL
     Route: 048
     Dates: end: 20070914
  4. SINEMET [Concomitant]
  5. ENTACAPONE (ENTACAPONE) [Concomitant]
  6. TOLCAPONE (TOLCAPONE) [Concomitant]
  7. COUMADIN [Concomitant]
  8. IMDUR [Concomitant]
  9. ZOLOFT [Concomitant]
  10. CIRCLINE [Concomitant]
  11. LASIX [Concomitant]
  12. PRAVASTATIN [Concomitant]

REACTIONS (5)
  - BLOOD PRESSURE DECREASED [None]
  - CHEST DISCOMFORT [None]
  - DEPRESSED LEVEL OF CONSCIOUSNESS [None]
  - DRUG INTERACTION [None]
  - PRESYNCOPE [None]
